FAERS Safety Report 5918629-8 (Version None)
Quarter: 2008Q4

REPORT INFORMATION
  Report Type: 
  Country: None (occurrence: None)
  Receive Date: 20081015
  Receipt Date: 20081008
  Transmission Date: 20090506
  Serious: Yes (Life-Threatening, Hospitalization, Disabling, Other)
  Sender: FDA-Public Use
  Company Number: BE-AVENTIS-200815214EU

PATIENT
  Age: 70 Year
  Sex: Male
  Weight: 72 kg

DRUGS (5)
  1. CLEXANE [Suspect]
     Route: 040
     Dates: start: 20080916, end: 20080916
  2. CARVEDIL [Concomitant]
  3. ASPIRIN [Concomitant]
     Dates: start: 20080903
  4. PLAVIX [Concomitant]
  5. SIMVASTATINE EG [Concomitant]

REACTIONS (3)
  - ACUTE MYOCARDIAL INFARCTION [None]
  - CATHETER THROMBOSIS [None]
  - CORONARY ARTERY THROMBOSIS [None]
